FAERS Safety Report 4863309-3 (Version None)
Quarter: 2005Q4

REPORT INFORMATION
  Report Type: 
  Country: None (occurrence: None)
  Receive Date: 20051219
  Receipt Date: 20051219
  Transmission Date: 20060501
  Serious: Yes (Hospitalization, Other)
  Sender: FDA-Public Use
  Company Number: None

PATIENT
  Sex: Male
  Weight: 58.2 kg

DRUGS (4)
  1. FLUOROURACIL [Suspect]
     Indication: BLADDER CANCER
     Dosage: SEE IMAGE
     Route: 042
     Dates: start: 20051017, end: 20051020
  2. CISPLATIN [Suspect]
     Dosage: SEE IMAGE
     Dates: start: 20051017, end: 20051019
  3. GEMCITABINE HYDROCHLORIDE [Suspect]
     Dosage: SEE IMAGE
     Dates: start: 20051017
  4. TAXOL [Suspect]
     Dosage: SEE IMAGE
     Dates: start: 20051017

REACTIONS (16)
  - ASTHENIA [None]
  - BLADDER SPASM [None]
  - BLOOD CALCIUM DECREASED [None]
  - BLOOD POTASSIUM DECREASED [None]
  - BLOOD SODIUM DECREASED [None]
  - CYSTOSCOPY ABNORMAL [None]
  - NEOPLASM MALIGNANT [None]
  - NEUTROPHIL COUNT DECREASED [None]
  - OEDEMA [None]
  - PAIN [None]
  - PLATELET COUNT DECREASED [None]
  - PROTEINURIA [None]
  - PURPURA [None]
  - RENAL FAILURE ACUTE [None]
  - SINUS BRADYCARDIA [None]
  - THROMBOCYTOPENIA [None]
